FAERS Safety Report 7623476-5 (Version None)
Quarter: 2011Q3

REPORT INFORMATION
  Report Type: 
  Country: None (occurrence: None)
  Receive Date: 20110720
  Receipt Date: 20110714
  Transmission Date: 20111222
  Serious: Yes (Death)
  Sender: FDA-Public Use
  Company Number: GXKR2010NO11855

PATIENT
  Age: 59 Year
  Sex: Male

DRUGS (6)
  1. AMITRIPTYLINE HCL [Suspect]
     Dosage: 125 MG, QD
     Route: 065
  2. ISOSORBIDE MONONITRATE [Concomitant]
     Route: 065
  3. MIRTAZAPINE [Suspect]
     Dosage: 60 MG, QD
     Route: 065
  4. ALPRAZOLAM [Concomitant]
     Dosage: 4 MG, QD
     Route: 065
  5. ATENOLOL [Concomitant]
     Route: 065
  6. BENDROFLUMETHIAZIDE [Concomitant]
     Route: 065

REACTIONS (13)
  - FATIGUE [None]
  - METABOLIC ACIDOSIS [None]
  - SEROTONIN SYNDROME [None]
  - MYALGIA [None]
  - MULTI-ORGAN FAILURE [None]
  - DYSSTASIA [None]
  - DEPRESSED LEVEL OF CONSCIOUSNESS [None]
  - PYREXIA [None]
  - DISSEMINATED INTRAVASCULAR COAGULATION [None]
  - HEADACHE [None]
  - BODY TEMPERATURE INCREASED [None]
  - HEPATIC ENZYME INCREASED [None]
  - AGITATION [None]
